FAERS Safety Report 8590567-4 (Version None)
Quarter: 2012Q3

REPORT INFORMATION
  Report Type: 
  Country: None (occurrence: None)
  Receive Date: 20120813
  Receipt Date: 20120802
  Transmission Date: 20120928
  Serious: Yes (Hospitalization, Disabling, Other)
  Sender: FDA-Public Use
  Company Number: US-009507513-1112USA01783

PATIENT

DRUGS (9)
  1. FOSAMAX [Suspect]
     Indication: OSTEOPOROSIS
     Dosage: 70 MG, QW
     Route: 048
     Dates: start: 19980303, end: 20100301
  2. FOSAMAX [Suspect]
     Route: 048
     Dates: start: 19980301, end: 20100301
  3. BONIVA [Suspect]
     Indication: OSTEOPOROSIS
     Dosage: UNK
     Route: 048
     Dates: start: 20070101
  4. FOSAMAX PLUS D [Suspect]
     Route: 048
     Dates: start: 19980301, end: 20100301
  5. CYMBALTA [Concomitant]
     Indication: NEUROPATHY PERIPHERAL
  6. FOSAMAX [Suspect]
     Dosage: 40 MG, BIW
     Route: 048
     Dates: start: 20000829, end: 20001221
  7. IBANDRONATE SODIUM [Suspect]
     Dates: start: 19980301, end: 20100301
  8. RISEDRONATE SODIUM [Suspect]
     Dates: start: 19980301, end: 20100301
  9. ACTONEL [Suspect]
     Indication: OSTEOPOROSIS
     Route: 048
     Dates: start: 19980303, end: 20100301

REACTIONS (22)
  - FLATULENCE [None]
  - NAUSEA [None]
  - INFECTION [None]
  - CHONDROCALCINOSIS [None]
  - BONE DENSITY ABNORMAL [None]
  - INAPPROPRIATE SCHEDULE OF DRUG ADMINISTRATION [None]
  - DENTAL IMPLANTATION [None]
  - POSTOPERATIVE WOUND INFECTION [None]
  - ATRIAL FIBRILLATION [None]
  - FEMUR FRACTURE [None]
  - CEREBRAL ATROPHY [None]
  - LYMPH NODE CALCIFICATION [None]
  - SUPRAVENTRICULAR TACHYCARDIA [None]
  - STAPHYLOCOCCAL INFECTION [None]
  - SPINAL OSTEOARTHRITIS [None]
  - HAEMATOMA INFECTION [None]
  - LEUKOCYTOSIS [None]
  - CARPAL TUNNEL SYNDROME [None]
  - STRESS FRACTURE [None]
  - HYPNAGOGIC HALLUCINATION [None]
  - BREAST CYST [None]
  - STITCH ABSCESS [None]
